FAERS Safety Report 4706668-4 (Version None)
Quarter: 2005Q3

REPORT INFORMATION
  Report Type: 
  Country: None (occurrence: None)
  Receive Date: 20050705
  Receipt Date: 20050629
  Transmission Date: 20060218
  Serious: Yes (Hospitalization)
  Sender: FDA-Public Use
  Company Number: JP-ROCHE-409368

PATIENT
  Age: 23 Month
  Sex: Male

DRUGS (2)
  1. TAMIFLU [Suspect]
     Route: 048
     Dates: start: 20050302
  2. TAMIFLU [Suspect]
     Route: 048
     Dates: start: 20050223

REACTIONS (1)
  - GENERALISED ERYTHEMA [None]
